FAERS Safety Report 16651712 (Version 1)
Quarter: 2019Q3

REPORT INFORMATION
  Report Type: Spontaneous
  Country: US (occurrence: US)
  Receive Date: 20190730
  Receipt Date: 20190730
  Transmission Date: 20191004
  Serious: Yes (Hospitalization)
  Sender: FDA-Public Use
  Company Number: None

PATIENT
  Sex: Male

DRUGS (22)
  1. FLOVENT [Concomitant]
     Active Substance: FLUTICASONE PROPIONATE
  2. OMEPRAZOLE. [Concomitant]
     Active Substance: OMEPRAZOLE
  3. CORLANOR [Concomitant]
     Active Substance: IVABRADINE HYDROCHLORIDE
  4. MYRBETRIQ [Concomitant]
     Active Substance: MIRABEGRON
  5. OXYCODONE [Concomitant]
     Active Substance: OXYCODONE
  6. PT CHLORIDE [Concomitant]
  7. VENTOLIN [Concomitant]
     Active Substance: ALBUTEROL SULFATE
  8. MONTELUKAST [Concomitant]
     Active Substance: MONTELUKAST SODIUM
  9. AMTRIPTYLINE [Concomitant]
  10. BUPRENORPHIN [Concomitant]
     Active Substance: BUPRENORPHINE
  11. FLUTICASONE. [Concomitant]
     Active Substance: FLUTICASONE
  12. TORSEMIDE. [Concomitant]
     Active Substance: TORSEMIDE
  13. CYANOCOBALAM [Concomitant]
     Active Substance: CYANOCOBALAMIN
  14. DULOXETINE. [Concomitant]
     Active Substance: DULOXETINE
  15. METHOTREXATE. [Concomitant]
     Active Substance: METHOTREXATE
  16. TIZANDINE [Concomitant]
     Active Substance: TIZANIDINE
  17. MATZIM [Concomitant]
     Active Substance: DILTIAZEM
  18. METOLAZONE. [Concomitant]
     Active Substance: METOLAZONE
  19. METOPROLOL. [Concomitant]
     Active Substance: METOPROLOL
  20. FOLIC ACID. [Concomitant]
     Active Substance: FOLIC ACID
  21. XELJANZ XR [Suspect]
     Active Substance: TOFACITINIB CITRATE
     Indication: RHEUMATOID ARTHRITIS
     Route: 048
     Dates: start: 20180310
  22. ATORVASTATIN [Concomitant]
     Active Substance: ATORVASTATIN

REACTIONS (5)
  - Dyspnoea [None]
  - Rheumatoid arthritis [None]
  - Oxygen saturation decreased [None]
  - Insurance issue [None]
  - Migraine [None]
